FAERS Safety Report 15915248 (Version 1)
Quarter: 2019Q1

REPORT INFORMATION
  Report Type: Spontaneous
  Country: US (occurrence: US)
  Receive Date: 20190204
  Receipt Date: 20190204
  Transmission Date: 20190417
  Serious: No
  Sender: FDA-Public Use
  Company Number: US-ABBVIE-18K-163-2560015-00

PATIENT
  Age: 12 Year
  Sex: Female
  Weight: 51.3 kg

DRUGS (7)
  1. PENTASA [Concomitant]
     Active Substance: MESALAMINE
     Indication: JUVENILE IDIOPATHIC ARTHRITIS
  2. VITAMIN D [Concomitant]
     Active Substance: CHOLECALCIFEROL
     Indication: VITAMIN SUPPLEMENTATION
  3. PENTASA [Concomitant]
     Active Substance: MESALAMINE
     Indication: CROHN^S DISEASE
  4. ZYRTEC [Concomitant]
     Active Substance: CETIRIZINE HYDROCHLORIDE
     Indication: SEASONAL ALLERGY
  5. HUMIRA [Suspect]
     Active Substance: ADALIMUMAB
     Indication: JUVENILE IDIOPATHIC ARTHRITIS
     Route: 058
     Dates: start: 2018
  6. HUMIRA [Suspect]
     Active Substance: ADALIMUMAB
     Indication: CROHN^S DISEASE
  7. IBUPROFEN. [Concomitant]
     Active Substance: IBUPROFEN
     Indication: PAIN

REACTIONS (10)
  - Hypoaesthesia [Not Recovered/Not Resolved]
  - Neck pain [Not Recovered/Not Resolved]
  - Vision blurred [Not Recovered/Not Resolved]
  - Wrong technique in product usage process [Unknown]
  - Fall [Recovered/Resolved]
  - Headache [Not Recovered/Not Resolved]
  - Post-traumatic neck syndrome [Not Recovered/Not Resolved]
  - Eye pain [Not Recovered/Not Resolved]
  - Injury associated with device [Unknown]
  - Incorrect dose administered [Unknown]

NARRATIVE: CASE EVENT DATE: 20180904
